FAERS Safety Report 21977139 (Version 1)
Quarter: 2023Q1

REPORT INFORMATION
  Report Type: Spontaneous
  Country: SE (occurrence: SE)
  Receive Date: 20230210
  Receipt Date: 20230210
  Transmission Date: 20230417
  Serious: Yes (Other)
  Sender: FDA-Public Use
  Company Number: None

PATIENT
  Age: 7 Year
  Sex: Male
  Weight: 51 kg

DRUGS (4)
  1. MONTELUKAST [Suspect]
     Active Substance: MONTELUKAST SODIUM
     Indication: Asthma
     Dosage: 5 MG 1X1
     Dates: start: 20210301, end: 20210819
  2. CLARITYN [Concomitant]
     Dosage: 10 MG 1X1
     Dates: start: 20170529
  3. FLUTICASONE\FORMOTEROL [Concomitant]
     Active Substance: FLUTICASONE\FORMOTEROL
     Dosage: 125 MCG/5 MCG/PUFF 1+0+1, INHALATION SPRAY, SUSPENSION
     Dates: start: 20210319
  4. ALBUTEROL SULFATE [Concomitant]
     Active Substance: ALBUTEROL SULFATE
     Dosage: 0.1 MG/DOSE 1VB, INHALATION SPRAY, SUSPENSION
     Dates: start: 20141215

REACTIONS (2)
  - Aggression [Recovered/Resolved]
  - Self-injurious ideation [Recovered/Resolved]

NARRATIVE: CASE EVENT DATE: 20210101
